FAERS Safety Report 16685517 (Version 1)
Quarter: 2019Q3

REPORT INFORMATION
  Report Type: Spontaneous
  Country: US (occurrence: US)
  Receive Date: 20190809
  Receipt Date: 20190809
  Transmission Date: 20191004
  Serious: No
  Sender: FDA-Public Use
  Company Number: US-SA-2019SA210260

PATIENT
  Age: 53 Year
  Sex: Female

DRUGS (2)
  1. DUPIXENT [Suspect]
     Active Substance: DUPILUMAB
     Indication: DERMATITIS ATOPIC
     Dosage: 300 MG, QOW
     Route: 058
     Dates: start: 20190313
  2. BUPROPION. [Concomitant]
     Active Substance: BUPROPION
     Indication: DEPRESSION
     Dosage: UNK
     Dates: start: 201905

REACTIONS (10)
  - Wrong technique in device usage process [Unknown]
  - Injection site mass [Unknown]
  - Skin discolouration [Unknown]
  - Tinea infection [Unknown]
  - Urticaria [Unknown]
  - Pruritus [Unknown]
  - Erythema [Unknown]
  - Incorrect dose administered [Unknown]
  - Pain [Unknown]
  - Drug ineffective [Unknown]

NARRATIVE: CASE EVENT DATE: 201906
